FAERS Safety Report 10072078 (Version 1)
Quarter: 2014Q2

REPORT INFORMATION
  Report Type: Spontaneous
  Country: US (occurrence: None)
  Receive Date: 20140410
  Receipt Date: 20140410
  Transmission Date: 20141212
  Serious: Yes (Other)
  Sender: FDA-Public Use
  Company Number: None

PATIENT
  Age: 35 Year
  Sex: Female
  Weight: 54.43 kg

DRUGS (3)
  1. TOPAMAX [Concomitant]
  2. PRILOSEC [Concomitant]
  3. CREST 3D [Suspect]

REACTIONS (4)
  - Toothache [None]
  - Gingival pain [None]
  - Stomatitis [None]
  - Gingival recession [None]
